FAERS Safety Report 24564889 (Version 4)
Quarter: 2025Q1

REPORT INFORMATION
  Report Type: Spontaneous
  Country: PL (occurrence: PL)
  Receive Date: 20241030
  Receipt Date: 20250108
  Transmission Date: 20250409
  Serious: Yes (Other)
  Sender: PFIZER
  Company Number: PL-002147023-NVSC2024PL200292

PATIENT
  Sex: Female

DRUGS (14)
  1. ETANERCEPT [Suspect]
     Active Substance: ETANERCEPT
     Route: 065
  2. ETANERCEPT [Suspect]
     Active Substance: ETANERCEPT
     Route: 065
  3. RITUXIMAB [Suspect]
     Active Substance: RITUXIMAB
  4. RITUXIMAB [Suspect]
     Active Substance: RITUXIMAB
  5. RITUXIMAB [Suspect]
     Active Substance: RITUXIMAB
  6. BASILIXIMAB [Suspect]
     Active Substance: BASILIXIMAB
  7. CYCLOSPORINE [Suspect]
     Active Substance: CYCLOSPORINE
     Indication: Graft versus host disease
  8. RUXOLITINIB [Suspect]
     Active Substance: RUXOLITINIB
  9. RUXOLITINIB [Suspect]
     Active Substance: RUXOLITINIB
  10. RUXOLITINIB [Suspect]
     Active Substance: RUXOLITINIB
  11. METHOTREXATE [Suspect]
     Active Substance: METHOTREXATE
     Indication: Graft versus host disease
  12. METHOTREXATE [Suspect]
     Active Substance: METHOTREXATE
     Dosage: 15 MG, WEEKLY
     Route: 042
  13. METHOTREXATE [Suspect]
     Active Substance: METHOTREXATE
     Dosage: 10 MG, WEEKLY
     Route: 065
  14. METHOTREXATE [Suspect]
     Active Substance: METHOTREXATE
     Dosage: 15 MG, WEEKLY (IN ALL, 2 DOSES 1X/WEEK)
     Route: 042
     Dates: start: 20240516

REACTIONS (18)
  - Cytokine release syndrome [Unknown]
  - Capillary leak syndrome [Unknown]
  - Staphylococcal sepsis [Unknown]
  - Venoocclusive liver disease [Unknown]
  - Acute graft versus host disease [Unknown]
  - Pancytopenia [Unknown]
  - Chronic graft versus host disease [Unknown]
  - Drug hypersensitivity [Unknown]
  - Weight increased [Unknown]
  - Diarrhoea [Unknown]
  - Rash maculo-papular [Unknown]
  - Skin lesion [Unknown]
  - Nausea [Unknown]
  - Vomiting [Unknown]
  - Mouth ulceration [Unknown]
  - Body temperature increased [Unknown]
  - General physical health deterioration [Unknown]
  - Oral disorder [Unknown]

NARRATIVE: CASE EVENT DATE: 20231228
